FAERS Safety Report 24950964 (Version 1)
Quarter: 2025Q1

REPORT INFORMATION
  Report Type: Spontaneous
  Country: IN (occurrence: IN)
  Receive Date: 20250210
  Receipt Date: 20250210
  Transmission Date: 20250409
  Serious: Yes (Other)
  Sender: GUERBET
  Company Number: IN-GUERBET / CHOKSI BROTHERS PRIVATE-IN-20250002

PATIENT
  Age: 7 Day
  Sex: Male
  Weight: 2.74 kg

DRUGS (3)
  1. LIPIODOL [Suspect]
     Active Substance: ETHIODIZED OIL
     Indication: Therapeutic embolisation
  2. LIPIODOL [Suspect]
     Active Substance: ETHIODIZED OIL
     Dosage: REPEAT PERCUTANEOUS EMBOLISATION USING LIPIODOL AND GLUE SOLUTION (33% CONCENTRATION) WAS DONE UNDER
  3. SODIUM TETRADECYL SULFATE [Suspect]
     Active Substance: SODIUM TETRADECYL SULFATE
     Indication: Therapeutic embolisation

REACTIONS (2)
  - Respiratory distress [Recovered/Resolved]
  - Pulmonary hypertension [Recovered/Resolved]
